FAERS Safety Report 25390879 (Version 3)
Quarter: 2025Q2

REPORT INFORMATION
  Report Type: Spontaneous
  Country: JP (occurrence: JP)
  Receive Date: 20250603
  Receipt Date: 20250627
  Transmission Date: 20250717
  Serious: Yes (Hospitalization, Other)
  Sender: MERCK SHARP & DOHME LLC
  Company Number: JP-009507513-2291693

PATIENT
  Age: 70 Year
  Sex: Female

DRUGS (15)
  1. BELSOMRA [Interacting]
     Active Substance: SUVOREXANT
     Indication: Insomnia
     Route: 048
  2. PAXLOVID [Interacting]
     Active Substance: NIRMATRELVIR\RITONAVIR
     Indication: COVID-19
     Route: 048
     Dates: start: 2022
  3. PREDNISOLONE [Concomitant]
     Active Substance: PREDNISOLONE
  4. TACROLIMUS [Interacting]
     Active Substance: TACROLIMUS
     Dosage: DOSAGE: 5 MG
     Route: 065
  5. TACROLIMUS [Interacting]
     Active Substance: TACROLIMUS
     Route: 065
  6. TACROLIMUS [Interacting]
     Active Substance: TACROLIMUS
     Route: 065
  7. MYCOPHENOLATE MOFETIL [Concomitant]
     Active Substance: MYCOPHENOLATE MOFETIL
  8. LANSOPRAZOLE [Concomitant]
     Active Substance: LANSOPRAZOLE
  9. URSODIOL [Concomitant]
     Active Substance: URSODIOL
  10. ASPIRIN [Concomitant]
     Active Substance: ASPIRIN
  11. ZETIA [Concomitant]
     Active Substance: EZETIMIBE
  12. CARBIDOPA\LEVODOPA [Concomitant]
     Active Substance: CARBIDOPA\LEVODOPA
  13. MAGNESIUM OXIDE [Concomitant]
     Active Substance: MAGNESIUM OXIDE
  14. Linaclotide (Linzess) [Concomitant]
  15. REMDESIVIR [Interacting]
     Active Substance: REMDESIVIR
     Indication: COVID-19
     Route: 042

REACTIONS (6)
  - Somnolence [Recovered/Resolved]
  - Labelled drug-drug interaction issue [Unknown]
  - Therapeutic product effect increased [Unknown]
  - Drug interaction [Recovering/Resolving]
  - Altered state of consciousness [Recovering/Resolving]
  - Labelled drug-drug interaction issue [Unknown]

NARRATIVE: CASE EVENT DATE: 20220101
